FAERS Safety Report 24582648 (Version 1)
Quarter: 2024Q4

REPORT INFORMATION
  Report Type: Spontaneous
  Country: US (occurrence: US)
  Receive Date: 20241106
  Receipt Date: 20241106
  Transmission Date: 20250114
  Serious: Yes (Hospitalization, Other)
  Sender: VELOXIS PHARMACEUTICALS
  Company Number: US-MLMSERVICE-20191001-1979313-1

PATIENT
  Age: 51 Year
  Sex: Female

DRUGS (13)
  1. TACROLIMUS [Interacting]
     Active Substance: TACROLIMUS
     Indication: Renal transplant
     Dosage: TAC TROUGH LEVEL WAS REDUCED TO 6-7 NG/DL
     Dates: start: 2016, end: 2016
  2. TACROLIMUS [Interacting]
     Active Substance: TACROLIMUS
     Indication: Immunosuppressant drug therapy
     Dosage: 13 MILLIGRAM, Q12H
     Dates: start: 2016, end: 2016
  3. TACROLIMUS [Interacting]
     Active Substance: TACROLIMUS
     Dosage: TARGET THE GOAL TROUGH OF 8-10 MG/DL
     Dates: end: 2016
  4. TACROLIMUS [Interacting]
     Active Substance: TACROLIMUS
     Dosage: 17 MILLIGRAM, Q12H
     Dates: start: 2016, end: 2016
  5. TACROLIMUS [Interacting]
     Active Substance: TACROLIMUS
     Dosage: TARGET TROUGH LEVEL OF 10-12 MG/DL
     Dates: start: 201512, end: 2016
  6. VALGANCICLOVIR [Interacting]
     Active Substance: VALGANCICLOVIR
     Indication: Antiviral prophylaxis
     Dosage: 450 MILLIGRAM, 48 HOUR
     Dates: start: 201512, end: 2016
  7. THYMOCYTE IMMUNE GLOBULIN NOS [Suspect]
     Active Substance: THYMOCYTE IMMUNE GLOBULIN NOS
     Indication: Immunosuppressant drug therapy
     Dosage: 3 DOSES OF 100 MG (1.5 MG/KG)
     Dates: start: 201512
  8. MYCOPHENOLATE MOFETIL [Interacting]
     Active Substance: MYCOPHENOLATE MOFETIL
     Indication: Immunosuppressant drug therapy
     Dosage: 1 GRAM, Q12H
     Dates: start: 201512, end: 2016
  9. MYCOPHENOLATE MOFETIL [Interacting]
     Active Substance: MYCOPHENOLATE MOFETIL
     Dosage: 500 MILLIGRAM, Q12H
     Dates: start: 2016, end: 2016
  10. SULFAMETHOXAZOLE AND TRIMETHOPRIM [Suspect]
     Active Substance: SULFAMETHOXAZOLE\TRIMETHOPRIM
     Indication: Antifungal prophylaxis
     Dosage: 1 DF, QD
     Dates: start: 201512, end: 2016
  11. CYCLOSPORINE [Suspect]
     Active Substance: CYCLOSPORINE
     Indication: Renal transplant
     Dosage: UNK
     Route: 065
  12. PREDNISONE [Interacting]
     Active Substance: PREDNISONE
     Indication: Immunosuppressant drug therapy
     Dosage: CONTINUED TO BE TAPERED
     Dates: start: 201512, end: 2016
  13. PREDNISONE [Interacting]
     Active Substance: PREDNISONE
     Dosage: 5 MILLIGRAM, QD
     Dates: start: 2016, end: 2016

REACTIONS (6)
  - Myelosuppression [Recovered/Resolved]
  - Myelosuppression [Recovered/Resolved]
  - Neutropenia [Recovered/Resolved]
  - Tremor [Unknown]
  - Hyperkalaemia [Unknown]
  - Drug interaction [Recovered/Resolved]

NARRATIVE: CASE EVENT DATE: 20160101
